FAERS Safety Report 19244637 (Version 1)
Quarter: 2021Q2

REPORT INFORMATION
  Report Type: Spontaneous
  Country: PL (occurrence: PL)
  Receive Date: 20210512
  Receipt Date: 20210512
  Transmission Date: 20210717
  Serious: Yes (Other)
  Sender: FDA-Public Use
  Company Number: PL-TEVA-2021-PL-1909986

PATIENT
  Sex: Female

DRUGS (6)
  1. CLONAZEPAM. [Suspect]
     Active Substance: CLONAZEPAM
     Indication: STIFF PERSON SYNDROME
     Route: 065
  2. DIAZEPAM. [Suspect]
     Active Substance: DIAZEPAM
     Indication: STIFF PERSON SYNDROME
     Dosage: MAXIMUM DAILY TOLERATED DOSE WAS 14MG
     Route: 065
  3. BACLOFEN. [Suspect]
     Active Substance: BACLOFEN
     Indication: STIFF PERSON SYNDROME
     Route: 065
  4. LEVETIRACETAM. [Suspect]
     Active Substance: LEVETIRACETAM
     Indication: STIFF PERSON SYNDROME
     Dosage: MAXIMUM DAILY TOLERATED DOSE WAS 1500MG
     Route: 065
  5. GABAPENTIN. [Suspect]
     Active Substance: GABAPENTIN
     Indication: STIFF PERSON SYNDROME
     Dosage: 1800 MILLIGRAM DAILY; MAXIMUM DAILY TOLERATED DOSE WAS 1800MG
     Route: 065
  6. METHYLPREDNISOLONE. [Suspect]
     Active Substance: METHYLPREDNISOLONE
     Indication: STIFF PERSON SYNDROME
     Dosage: THERAPEUTIC DOSE OF 1500MG
     Route: 065

REACTIONS (8)
  - Vertigo [Unknown]
  - Seizure [Unknown]
  - Hyperglycaemia [Unknown]
  - Muscle rigidity [Unknown]
  - Tachycardia [Unknown]
  - Hypotension [Unknown]
  - Dystonia [Unknown]
  - Speech disorder [Unknown]
